FAERS Safety Report 17637847 (Version 1)
Quarter: 2020Q2

REPORT INFORMATION
  Report Type: Spontaneous
  Country: US (occurrence: US)
  Receive Date: 20200407
  Receipt Date: 20200407
  Transmission Date: 20200713
  Serious: No
  Sender: FDA-Public Use
  Company Number: US-UNITED THERAPEUTICS-UNT-2020-005111

PATIENT
  Age: 30 Year
  Sex: Female

DRUGS (2)
  1. REMODULIN [Suspect]
     Active Substance: TREPROSTINIL
     Indication: PULMONARY ARTERIAL HYPERTENSION
     Dosage: UNK UNK, CONTINUING
     Route: 041
     Dates: start: 20180830
  2. REMODULIN [Suspect]
     Active Substance: TREPROSTINIL
     Dosage: 0.0685 ?G/KG, CONTINUING
     Route: 041

REACTIONS (6)
  - Injection site discharge [Unknown]
  - Purulent discharge [Unknown]
  - Injection site infection [Unknown]
  - Injection site swelling [Unknown]
  - Dermatitis contact [Unknown]
  - Injection site erythema [Unknown]

NARRATIVE: CASE EVENT DATE: 202003
